FAERS Safety Report 16315177 (Version 3)
Quarter: 2021Q2

REPORT INFORMATION
  Report Type: Spontaneous
  Country: US (occurrence: US)
  Receive Date: 20190515
  Receipt Date: 20210422
  Transmission Date: 20210716
  Serious: Yes (Other)
  Sender: FDA-Public Use
  Company Number: US-ASTRAZENECA-2019SE68335

PATIENT
  Age: 687 Month
  Sex: Female
  Weight: 134.7 kg

DRUGS (116)
  1. OMEPRAZOLE. [Suspect]
     Active Substance: OMEPRAZOLE
     Indication: GASTROOESOPHAGEAL REFLUX DISEASE
     Route: 065
     Dates: start: 201306, end: 201404
  2. CHLORTHALIDONE. [Concomitant]
     Active Substance: CHLORTHALIDONE
     Route: 048
  3. SUCRALFATE. [Concomitant]
     Active Substance: SUCRALFATE
     Indication: ULCER
     Route: 048
  4. LIPODERM [Concomitant]
     Active Substance: BACLOFEN\CYCLOBENZAPRINE\DICLOFENAC\GABAPENTIN\TETRACAINE
     Dates: start: 20171121
  5. LIDOCAIN [Concomitant]
     Active Substance: LIDOCAINE
  6. AMPICILLIN [Concomitant]
     Active Substance: AMPICILLIN
     Dosage: 50.0MG EVERY 8 ? 12 HOURS
     Route: 048
     Dates: start: 20180928
  7. METOCLOPRAMIDE. [Concomitant]
     Active Substance: METOCLOPRAMIDE
     Dosage: 10.0MG EVERY 8 ? 12 HOURS
     Route: 048
     Dates: start: 20180920
  8. OSELTAMIVIR [Concomitant]
     Active Substance: OSELTAMIVIR
     Route: 048
     Dates: start: 20200120
  9. CARVEDILOL. [Concomitant]
     Active Substance: CARVEDILOL
     Dates: start: 20171023
  10. SERTRALINE [Concomitant]
     Active Substance: SERTRALINE HYDROCHLORIDE
     Dates: start: 20171023
  11. OMEPRAZOLE. [Suspect]
     Active Substance: OMEPRAZOLE
     Indication: GASTROOESOPHAGEAL REFLUX DISEASE
     Route: 065
     Dates: start: 201306, end: 201404
  12. PROTONIX [Suspect]
     Active Substance: PANTOPRAZOLE SODIUM
     Indication: GASTROOESOPHAGEAL REFLUX DISEASE
     Route: 048
     Dates: start: 20100217
  13. LISINOPRIL. [Concomitant]
     Active Substance: LISINOPRIL
     Indication: BLOOD PRESSURE FLUCTUATION
     Route: 048
     Dates: start: 20171122
  14. CITALOPRAM [Concomitant]
     Active Substance: CITALOPRAM HYDROBROMIDE
     Indication: BLOOD PRESSURE FLUCTUATION
     Dates: start: 2017
  15. DULOXETINE. [Concomitant]
     Active Substance: DULOXETINE
     Indication: PAIN
     Dates: start: 2019
  16. ZYRTEC [Concomitant]
     Active Substance: CETIRIZINE HYDROCHLORIDE
     Indication: HYPERSENSITIVITY
  17. FISH OIL [Concomitant]
     Active Substance: FISH OIL
     Dates: start: 201307
  18. LOTEMAX [Concomitant]
     Active Substance: LOTEPREDNOL ETABONATE
  19. SUCRALFATE. [Concomitant]
     Active Substance: SUCRALFATE
     Indication: ULCER
     Dates: start: 2007, end: 2011
  20. ZANAFLEX [Concomitant]
     Active Substance: TIZANIDINE HYDROCHLORIDE
  21. WHEY [Concomitant]
     Active Substance: WHEY
  22. LEVAQUIN [Concomitant]
     Active Substance: LEVOFLOXACIN
     Route: 048
  23. METOPROLOL TARTRATE. [Concomitant]
     Active Substance: METOPROLOL TARTRATE
     Route: 048
  24. BESIVANCE [Concomitant]
     Active Substance: BESIFLOXACIN
     Dosage: 0.6% OPETH SOLN
     Dates: start: 20170726
  25. RESTASIS [Concomitant]
     Active Substance: CYCLOSPORINE
     Dates: start: 20171023
  26. OMEPRAZOLE. [Suspect]
     Active Substance: OMEPRAZOLE
     Indication: GASTROOESOPHAGEAL REFLUX DISEASE
     Route: 065
  27. OMEPRAZOLE. [Suspect]
     Active Substance: OMEPRAZOLE
     Indication: GASTROOESOPHAGEAL REFLUX DISEASE
     Dosage: DAILY
     Route: 065
     Dates: start: 20140703
  28. DEXILANT [Suspect]
     Active Substance: DEXLANSOPRAZOLE
     Indication: GASTROOESOPHAGEAL REFLUX DISEASE
     Route: 048
     Dates: start: 20171121
  29. CLONIDINE. [Concomitant]
     Active Substance: CLONIDINE
     Indication: BLOOD PRESSURE FLUCTUATION
     Dates: start: 2018
  30. NITROPASTE [Concomitant]
     Active Substance: NITROGLYCERIN
     Dates: start: 20171121
  31. LIDODERM [Concomitant]
     Active Substance: LIDOCAINE
     Dosage: 5 %
  32. ONDANSETRON [Concomitant]
     Active Substance: ONDANSETRON
  33. NAROPIN [Concomitant]
     Active Substance: ROPIVACAINE HYDROCHLORIDE
  34. NUVARING [Concomitant]
     Active Substance: ETHINYL ESTRADIOL\ETONOGESTREL
  35. GLIPIZIDE. [Concomitant]
     Active Substance: GLIPIZIDE
     Route: 048
     Dates: start: 20190424
  36. PREDNISONE. [Concomitant]
     Active Substance: PREDNISONE
     Route: 048
     Dates: start: 20190923
  37. AZITHROMYCIN ANHYDROUS. [Concomitant]
     Active Substance: AZITHROMYCIN ANHYDROUS
     Route: 048
     Dates: start: 20200120
  38. COMBIGAN [Concomitant]
     Active Substance: BRIMONIDINE TARTRATE\TIMOLOL MALEATE
     Dates: start: 20171023
  39. DEXILANT [Suspect]
     Active Substance: DEXLANSOPRAZOLE
     Indication: GASTROOESOPHAGEAL REFLUX DISEASE
     Dosage: DELAYED RELEASE
     Route: 048
     Dates: start: 2011, end: 2017
  40. CEFDINIR. [Concomitant]
     Active Substance: CEFDINIR
  41. ECOTRIN [Concomitant]
     Active Substance: ASPIRIN
     Route: 048
     Dates: start: 20171121
  42. LOVENOX [Concomitant]
     Active Substance: ENOXAPARIN SODIUM
     Dates: start: 20171121
  43. AMOXICILLIN. [Concomitant]
     Active Substance: AMOXICILLIN
     Route: 048
  44. WELLBUTRIN [Concomitant]
     Active Substance: BUPROPION HYDROCHLORIDE
     Dosage: SUSTAINED RELEASE
     Route: 048
  45. FLUTICASONE. [Concomitant]
     Active Substance: FLUTICASONE
  46. BETAMETHASONE. [Concomitant]
     Active Substance: BETAMETHASONE
     Indication: PSORIASIS
     Dosage: 0.05% DROPS
  47. ACYCLOVIR. [Concomitant]
     Active Substance: ACYCLOVIR
     Indication: PARALYSIS
  48. METHYLPREDNISOLONE. [Concomitant]
     Active Substance: METHYLPREDNISOLONE
     Route: 048
  49. CHROMIUM PICOLINATE [Concomitant]
     Active Substance: CHROMIUM PICOLINATE
  50. TEGRETOL [Concomitant]
     Active Substance: CARBAMAZEPINE
  51. FLUOCINOLONE [Concomitant]
     Active Substance: FLUOCINOLONE
     Dosage: 0.01 % OIL DROPS? TWICE DAILY
     Dates: start: 20180920
  52. MINOXIDIL. [Concomitant]
     Active Substance: MINOXIDIL
     Route: 048
     Dates: start: 20190422
  53. ADVAIR HFA [Concomitant]
     Active Substance: FLUTICASONE PROPIONATE\SALMETEROL XINAFOATE
     Dosage: 115/21 MCG? TWO PUFF DAILY
     Route: 048
     Dates: start: 20190925
  54. DOXAZOSIN [Concomitant]
     Active Substance: DOXAZOSIN MESYLATE
     Route: 048
     Dates: start: 20190801
  55. PROLENSA [Concomitant]
     Active Substance: BROMFENAC SODIUM
     Dates: start: 20171023
  56. OMEPRAZOLE. [Suspect]
     Active Substance: OMEPRAZOLE
     Indication: GASTROOESOPHAGEAL REFLUX DISEASE
     Dosage: DAILY
     Route: 065
     Dates: start: 20140703
  57. DEXILANT [Suspect]
     Active Substance: DEXLANSOPRAZOLE
     Indication: GASTROOESOPHAGEAL REFLUX DISEASE
     Route: 048
     Dates: start: 20171121
  58. DEXILANT [Suspect]
     Active Substance: DEXLANSOPRAZOLE
     Indication: GASTROOESOPHAGEAL REFLUX DISEASE
     Route: 048
     Dates: start: 20110503
  59. PROTONIX [Suspect]
     Active Substance: PANTOPRAZOLE SODIUM
     Indication: GASTROOESOPHAGEAL REFLUX DISEASE
     Route: 065
     Dates: start: 2008, end: 201108
  60. LISINOPRIL. [Concomitant]
     Active Substance: LISINOPRIL
     Indication: BLOOD PRESSURE FLUCTUATION
     Route: 048
     Dates: start: 20180403
  61. LISINOPRIL. [Concomitant]
     Active Substance: LISINOPRIL
     Indication: BLOOD PRESSURE FLUCTUATION
     Dates: start: 2008
  62. BUMETANIDE. [Concomitant]
     Active Substance: BUMETANIDE
     Indication: SWELLING
     Dates: start: 201808
  63. ERYTHROMYCIN. [Concomitant]
     Active Substance: ERYTHROMYCIN
     Route: 047
     Dates: start: 20180403
  64. TRIAMCINOLONE [Concomitant]
     Active Substance: TRIAMCINOLONE
     Dosage: 0.1 % DENTAL PASTE
  65. BACTRIM [Concomitant]
     Active Substance: SULFAMETHOXAZOLE\TRIMETHOPRIM
  66. ANTIVERT [Concomitant]
     Active Substance: MECLIZINE HYDROCHLORIDE
  67. TRAMADOL. [Concomitant]
     Active Substance: TRAMADOL
     Dosage: 50.0MG EVERY 8 ? 12 HOURS
     Route: 048
     Dates: start: 20181228
  68. PRAZOSIN. [Concomitant]
     Active Substance: PRAZOSIN
     Route: 048
     Dates: start: 20190923
  69. OFLOXACIN. [Concomitant]
     Active Substance: OFLOXACIN
     Dates: start: 20170922
  70. EUCRISA [Concomitant]
     Active Substance: CRISABOROLE
     Dates: start: 20171023
  71. CALCIPOTRIENE. [Concomitant]
     Active Substance: CALCIPOTRIENE
     Dates: start: 20171023
  72. PENTAZOCINE [Concomitant]
     Active Substance: PENTAZOCINE
     Dates: start: 20171023
  73. DEXILANT [Suspect]
     Active Substance: DEXLANSOPRAZOLE
     Indication: GASTROOESOPHAGEAL REFLUX DISEASE
     Dosage: DELAYED RELEASE
     Route: 048
     Dates: start: 2011, end: 2017
  74. DEXILANT [Suspect]
     Active Substance: DEXLANSOPRAZOLE
     Indication: GASTROOESOPHAGEAL REFLUX DISEASE
     Route: 048
     Dates: start: 20110503
  75. DULOXETINE. [Concomitant]
     Active Substance: DULOXETINE
     Indication: DEPRESSION
     Dates: start: 2019
  76. VITAMIN D3 [Concomitant]
     Active Substance: CHOLECALCIFEROL
     Indication: VITAMIN D DEFICIENCY
     Dates: start: 2018
  77. ELOCON [Concomitant]
     Active Substance: MOMETASONE FUROATE
     Dosage: AS NEEDED
     Route: 061
     Dates: start: 20180416
  78. VENTOLIN [Concomitant]
     Active Substance: ALBUTEROL SULFATE
     Dates: start: 20171121
  79. FAMOTIDINE. [Concomitant]
     Active Substance: FAMOTIDINE
     Route: 048
     Dates: start: 20171121
  80. VOLTAREN [Concomitant]
     Active Substance: DICLOFENAC SODIUM
     Dates: start: 20171121
  81. LYRICA [Concomitant]
     Active Substance: PREGABALIN
  82. HYDROXYZINE [Concomitant]
     Active Substance: HYDROXYZINE HYDROCHLORIDE
     Indication: ANXIETY
  83. GABAPENTIN. [Concomitant]
     Active Substance: GABAPENTIN
  84. HYDRALAZINE [Concomitant]
     Active Substance: HYDRALAZINE HYDROCHLORIDE
     Route: 048
     Dates: start: 20190326
  85. PIOGLITAZONE. [Concomitant]
     Active Substance: PIOGLITAZONE
     Route: 048
     Dates: start: 20190801
  86. LATANOPROST. [Concomitant]
     Active Substance: LATANOPROST
     Dosage: 0.005% OPETH SOLN
     Dates: start: 20170726
  87. DOXYCYCLINE. [Concomitant]
     Active Substance: DOXYCYCLINE
     Route: 048
     Dates: start: 20170918
  88. ESTRACE [Concomitant]
     Active Substance: ESTRADIOL
     Dates: start: 20171023
  89. CLOBETASOL [Concomitant]
     Active Substance: CLOBETASOL
     Dates: start: 20171023
  90. GENTAMYCIN [Concomitant]
     Active Substance: GENTAMICIN
     Dates: start: 20171023
  91. KETOCONAZOLE. [Concomitant]
     Active Substance: KETOCONAZOLE
  92. DEXILANT [Suspect]
     Active Substance: DEXLANSOPRAZOLE
     Indication: GASTROOESOPHAGEAL REFLUX DISEASE
     Route: 065
  93. DEXILANT [Suspect]
     Active Substance: DEXLANSOPRAZOLE
     Indication: GASTROOESOPHAGEAL REFLUX DISEASE
     Route: 065
  94. VITAMIN B12 [Concomitant]
     Active Substance: CYANOCOBALAMIN
     Indication: FACIAL PARALYSIS
     Dates: start: 201307
  95. AMLODIPINE BESYLATE. [Concomitant]
     Active Substance: AMLODIPINE BESYLATE
     Route: 048
     Dates: start: 20180403
  96. AZELASTINE. [Concomitant]
     Active Substance: AZELASTINE HYDROCHLORIDE
  97. ILEVRO [Concomitant]
     Active Substance: NEPAFENAC
  98. RANITIDINE. [Concomitant]
     Active Substance: RANITIDINE
     Route: 048
  99. RANITIDINE. [Concomitant]
     Active Substance: RANITIDINE
     Dates: start: 2007, end: 2011
  100. MAGNESIUM SULFATE. [Concomitant]
     Active Substance: MAGNESIUM SULFATE
     Dates: start: 20171121
  101. PATADAY [Concomitant]
     Active Substance: OLOPATADINE HYDROCHLORIDE
     Dosage: 0.2 % EYE DROPS
  102. BACTROBAN [Concomitant]
     Active Substance: MUPIROCIN\MUPIROCIN CALCIUM
  103. MAGNESIUM OXIDE. [Concomitant]
     Active Substance: MAGNESIUM OXIDE
     Indication: FACIAL PARALYSIS
     Dates: start: 2013
  104. MAGNESIUM OXIDE. [Concomitant]
     Active Substance: MAGNESIUM OXIDE
     Indication: FACIAL PARALYSIS
     Dates: start: 201307
  105. FLUOROMETHOLONE. [Concomitant]
     Active Substance: FLUOROMETHOLONE
     Dosage: 0.1% OPHT SUSP
  106. ATORVASTATIN [Concomitant]
     Active Substance: ATORVASTATIN
     Route: 048
     Dates: start: 20190219
  107. MOMETASONE [Concomitant]
     Active Substance: MOMETASONE
     Dates: start: 20171023
  108. BETAMETHASONE PROPIONATE [Concomitant]
  109. OMEPRAZOLE. [Suspect]
     Active Substance: OMEPRAZOLE
     Indication: GASTROOESOPHAGEAL REFLUX DISEASE
     Route: 065
  110. VITAMIN B12 [Concomitant]
     Active Substance: CYANOCOBALAMIN
     Indication: FACIAL PARALYSIS
     Route: 048
     Dates: start: 20171121
  111. RANITIDINE. [Concomitant]
     Active Substance: RANITIDINE
     Dates: start: 2014
  112. CLOBEX [Concomitant]
     Active Substance: CLOBETASOL PROPIONATE
     Dosage: 0.05% TOPICAL SPRAY
  113. CLOTRIMAZOLE. [Concomitant]
     Active Substance: CLOTRIMAZOLE
     Dosage: 1% TOPICAL SOLUTION
  114. MIRALAX [Concomitant]
     Active Substance: POLYETHYLENE GLYCOL 3350
     Indication: CONSTIPATION
     Dosage: 1 UNIT
  115. AMOXICILLIN?POTASSIUM CLAVULANATE [Concomitant]
     Active Substance: AMOXICILLIN\CLAVULANATE POTASSIUM
     Route: 048
  116. POLYMYXIN?B [Concomitant]
     Dates: start: 20170918

REACTIONS (3)
  - Chronic kidney disease [Unknown]
  - Hyperparathyroidism secondary [Unknown]
  - Renal failure [Not Recovered/Not Resolved]

NARRATIVE: CASE EVENT DATE: 201703
